FAERS Safety Report 17043267 (Version 1)
Quarter: 2019Q4

REPORT INFORMATION
  Report Type: Spontaneous
  Country: US (occurrence: US)
  Receive Date: 20191017
  Receipt Date: 20191017
  Transmission Date: 20200122
  Serious: No
  Sender: FDA-Public Use
  Company Number: None

PATIENT
  Age: 31 Year
  Sex: Female
  Weight: 75.75 kg

DRUGS (3)
  1. PRENATAL [Concomitant]
     Active Substance: VITAMINS
  2. D3 VITAMIN [Concomitant]
  3. NP THYROID [Suspect]
     Active Substance: LEVOTHYROXINE\LIOTHYRONINE
     Indication: THYROID HORMONES DECREASED
     Dosage: ?          QUANTITY:1 DF DOSAGE FORM;?
     Route: 048
     Dates: end: 20190110

REACTIONS (6)
  - Weight increased [None]
  - Headache [None]
  - Product odour abnormal [None]
  - Diarrhoea [None]
  - Palpitations [None]
  - Nausea [None]

NARRATIVE: CASE EVENT DATE: 20190910
